FAERS Safety Report 5908084-6 (Version None)
Quarter: 2008Q4

REPORT INFORMATION
  Report Type: 
  Country: None (occurrence: None)
  Receive Date: 20081003
  Receipt Date: 20080924
  Transmission Date: 20090506
  Serious: Yes (Hospitalization, Other)
  Sender: FDA-Public Use
  Company Number: US-PFIZER INC-2008080537

PATIENT
  Age: 70 Year
  Sex: Male

DRUGS (2)
  1. LIPITOR [Suspect]
     Indication: BLOOD CHOLESTEROL INCREASED
     Route: 048
     Dates: start: 19980101, end: 20080701
  2. AUGMENTIN '125' [Suspect]
     Indication: DIVERTICULITIS
     Dosage: TEXT:875MG/125MG-FREQ:TOTAL OF 40 TABLETS IN 10 DAYS
     Route: 048
     Dates: start: 20080616, end: 20080626

REACTIONS (2)
  - DIVERTICULITIS [None]
  - JAUNDICE CHOLESTATIC [None]
